FAERS Safety Report 22386566 (Version 1)
Quarter: 2023Q2

REPORT INFORMATION
  Report Type: Spontaneous
  Country: PL (occurrence: PL)
  Receive Date: 20230531
  Receipt Date: 20230531
  Transmission Date: 20230721
  Serious: Yes (Death)
  Sender: FDA-Public Use
  Company Number: None

PATIENT
  Age: 67 Year
  Sex: Female
  Weight: 136 kg

DRUGS (6)
  1. JARDIANCE [Suspect]
     Active Substance: EMPAGLIFLOZIN
     Indication: Type 1 diabetes mellitus
     Dosage: DRUG ADMINISTERED FOR ABOUT 2 YEARS, SINCE 2020 (?)
     Route: 048
     Dates: start: 2020
  2. Encorton 5 MG [Concomitant]
     Indication: Product used for unknown indication
     Route: 048
  3. Euphyllin long 200 MG [Concomitant]
     Indication: Product used for unknown indication
     Route: 048
  4. METFORMIN HYDROCHLORIDE [Concomitant]
     Active Substance: METFORMIN HYDROCHLORIDE
     Indication: Product used for unknown indication
     Dosage: UNKNOWN DOSE
  5. TORSEMED 10 MG [Concomitant]
     Indication: Product used for unknown indication
     Route: 048
  6. GENSULIN [Concomitant]
     Indication: Product used for unknown indication
     Dosage: DOSING ACCORDING TO GLYCEMIA
     Route: 058

REACTIONS (2)
  - Dermo-hypodermitis [Fatal]
  - Cellulitis [Fatal]

NARRATIVE: CASE EVENT DATE: 20230428
